FAERS Safety Report 11921352 (Version 2)
Quarter: 2016Q3

REPORT INFORMATION
  Report Type: Spontaneous
  Country: US (occurrence: US)
  Receive Date: 20160115
  Receipt Date: 20160718
  Transmission Date: 20161109
  Serious: No
  Sender: FDA-Public Use
  Company Number: US-ASTELLAS-2015US047833

PATIENT
  Sex: Female

DRUGS (1)
  1. MYRBETRIQ [Suspect]
     Active Substance: MIRABEGRON
     Indication: BLADDER DISORDER
     Route: 065
     Dates: start: 201512, end: 201601

REACTIONS (5)
  - Drug effect incomplete [Unknown]
  - Fall [Unknown]
  - Limb injury [Unknown]
  - Intentional product use issue [Unknown]
  - Joint swelling [Unknown]
